FAERS Safety Report 9709112 (Version 1)
Quarter: 2013Q4

REPORT INFORMATION
  Report Type: Report from Study
  Country: US (occurrence: US)
  Receive Date: 20131125
  Receipt Date: 20131125
  Transmission Date: 20140711
  Serious: Yes (Other)
  Sender: FDA-Public Use
  Company Number: US-ABBVIE-13P-163-1170158-00

PATIENT
  Age: 72 Year
  Sex: Female
  Weight: 78.09 kg

DRUGS (9)
  1. HUMIRA [Suspect]
     Indication: RHEUMATOID ARTHRITIS
     Dates: end: 2012
  2. HUMIRA [Suspect]
     Dates: start: 201309, end: 20131001
  3. METFORMIN [Concomitant]
     Indication: DIABETES MELLITUS
  4. OMEPRAZOLE [Concomitant]
     Indication: GASTRIC DISORDER
  5. VERAPAMIL [Concomitant]
     Indication: HYPERTENSION
  6. ESCITALOPRAM [Concomitant]
     Indication: DEPRESSION
  7. ATORVASTATIN [Concomitant]
     Indication: BLOOD CHOLESTEROL INCREASED
  8. LOSARTAN [Concomitant]
     Indication: HYPERTENSION
  9. HYDROCHLORO [Concomitant]
     Indication: PRODUCT USED FOR UNKNOWN INDICATION

REACTIONS (5)
  - Carotid artery occlusion [Recovered/Resolved]
  - Carotid artery occlusion [Not Recovered/Not Resolved]
  - Neck pain [Not Recovered/Not Resolved]
  - Local swelling [Not Recovered/Not Resolved]
  - Extrasystoles [Recovered/Resolved]
